FAERS Safety Report 7063240 (Version 2)
Quarter: 2014Q2

REPORT INFORMATION
  Report Type: Spontaneous
  Country: US (occurrence: US)
  Receive Date: 20090724
  Receipt Date: 20140416
  Transmission Date: 20141212
  Serious: Yes (Hospitalization)
  Sender: FDA-Public Use
  Company Number: US-ALEXION-A200900366

PATIENT
  Age: 67 Year
  Sex: Female

DRUGS (7)
  1. SOLIRIS [Suspect]
     Indication: PAROXYSMAL NOCTURNAL HAEMOGLOBINURIA
     Dosage: 600 MG, QW
     Route: 042
     Dates: start: 20090319, end: 200904
  2. SOLIRIS [Suspect]
     Dosage: 900 MG, Q2WK
     Route: 042
     Dates: start: 20090416
  3. COUMADIN                           /00014802/ [Concomitant]
     Indication: THROMBOSIS PROPHYLAXIS
     Dosage: 1.5 MG, UNK
     Route: 048
  4. NORVASC                            /00972401/ [Concomitant]
     Indication: ANGINA PECTORIS
     Dosage: 10 MG, QD
     Route: 048
  5. TOPROL [Concomitant]
     Indication: HYPERTENSION
     Dosage: 2.5 MG, QD
     Route: 048
  6. IRON [Concomitant]
     Indication: ANAEMIA
     Dosage: 325 MG, QD
     Route: 048
  7. MULTI-VIT [Concomitant]
     Indication: SUPPLEMENTATION THERAPY
     Dosage: 1 TABLET/DAILY
     Route: 048

REACTIONS (5)
  - Oesophageal disorder [Unknown]
  - Blood lactate dehydrogenase increased [Unknown]
  - Viral upper respiratory tract infection [Recovered/Resolved]
  - White blood cell count decreased [Unknown]
  - Infection [Unknown]
